FAERS Safety Report 18026593 (Version 2)
Quarter: 2020Q3

REPORT INFORMATION
  Report Type: Spontaneous
  Country: US (occurrence: US)
  Receive Date: 20200715
  Receipt Date: 20200720
  Transmission Date: 20201103
  Serious: Yes (Death)
  Sender: FDA-Public Use
  Company Number: US-PFIZER INC-2015208366

PATIENT
  Age: 80 Year
  Sex: Female
  Weight: 78 kg

DRUGS (3)
  1. REVATIO [Suspect]
     Active Substance: SILDENAFIL CITRATE
     Indication: PULMONARY HYPERTENSION
     Dosage: UNK, 2X/DAY
  2. REVATIO [Suspect]
     Active Substance: SILDENAFIL CITRATE
     Dosage: 40 MG, DAILY (2 TABLETS A DAY)
     Route: 048
  3. REVATIO [Suspect]
     Active Substance: SILDENAFIL CITRATE
     Dosage: 60 MG, DAILY (REVATIO 20MG ? QTY OF 270 FOR A 90 DAY^S SUPPLY)

REACTIONS (3)
  - Intentional product use issue [Unknown]
  - Wrong dose [Unknown]
  - Death [Fatal]

NARRATIVE: CASE EVENT DATE: 20200711
